FAERS Safety Report 14563297 (Version 1)
Quarter: 2018Q1

REPORT INFORMATION
  Report Type: Spontaneous
  Country: US (occurrence: US)
  Receive Date: 20180222
  Receipt Date: 20180222
  Transmission Date: 20180509
  Serious: Yes (Other)
  Sender: FDA-Public Use
  Company Number: US-PFIZER INC-2018056045

PATIENT
  Sex: Female

DRUGS (1)
  1. IBRANCE [Suspect]
     Active Substance: PALBOCICLIB
     Indication: CONNECTIVE TISSUE NEOPLASM
     Dosage: 125 MG, DAILY
     Route: 048
     Dates: start: 20170906

REACTIONS (7)
  - Blister [Unknown]
  - Fatigue [Recovering/Resolving]
  - Onychoclasis [Unknown]
  - Epistaxis [Unknown]
  - Back pain [Unknown]
  - Oropharyngeal pain [Recovering/Resolving]
  - Product use in unapproved indication [Unknown]

NARRATIVE: CASE EVENT DATE: 20170906
